FAERS Safety Report 20605614 (Version 1)
Quarter: 2022Q1

REPORT INFORMATION
  Report Type: Report from Study
  Country: ZA (occurrence: ZA)
  Receive Date: 20220317
  Receipt Date: 20220317
  Transmission Date: 20220423
  Serious: Yes (Hospitalization, Other)
  Sender: FDA-Public Use
  Company Number: ZA-SA-SAC20220310001954

PATIENT
  Age: 41 Year
  Sex: Female

DRUGS (1)
  1. INSULIN GLARGINE [Suspect]
     Active Substance: INSULIN GLARGINE
     Indication: Diabetes mellitus
     Dosage: 16U,QD
     Route: 058
     Dates: start: 20220101, end: 2022

REACTIONS (2)
  - Stoma obstruction [Unknown]
  - Faecaloma [Unknown]

NARRATIVE: CASE EVENT DATE: 20220209
